FAERS Safety Report 16507293 (Version 4)
Quarter: 2019Q3

REPORT INFORMATION
  Report Type: Report from Study
  Country: US (occurrence: US)
  Receive Date: 20190701
  Receipt Date: 20190912
  Transmission Date: 20191004
  Serious: Yes (Hospitalization)
  Sender: FDA-Public Use
  Company Number: US-ACTELION-A-NJ2019-191249

PATIENT
  Age: 74 Year
  Sex: Female

DRUGS (2)
  1. OPSUMIT [Suspect]
     Active Substance: MACITENTAN
     Indication: PRODUCT USED FOR UNKNOWN INDICATION
     Dosage: 10 MG, QD
     Route: 048
     Dates: start: 201902
  2. NORVASC [Concomitant]
     Active Substance: AMLODIPINE BESYLATE

REACTIONS (8)
  - Myocardial oedema [Recovering/Resolving]
  - Fluid overload [Recovering/Resolving]
  - Pulmonary oedema [Recovering/Resolving]
  - Oedema peripheral [Recovering/Resolving]
  - Fluid retention [Unknown]
  - Peripheral swelling [Unknown]
  - Dyspnoea [Recovering/Resolving]
  - Oedematous kidney [Recovering/Resolving]

NARRATIVE: CASE EVENT DATE: 20190729
